FAERS Safety Report 9604358 (Version 2)
Quarter: 2013Q4

REPORT INFORMATION
  Report Type: Spontaneous
  Country: US (occurrence: US)
  Receive Date: 20131008
  Receipt Date: 20131018
  Transmission Date: 20140711
  Serious: Yes (Other)
  Sender: FDA-Public Use
  Company Number: PHEH2013US020355

PATIENT
  Sex: 0

DRUGS (1)
  1. ILARIS [Suspect]
     Indication: JUVENILE IDIOPATHIC ARTHRITIS

REACTIONS (2)
  - Angiopathy [Unknown]
  - Pulmonary hypertension [Unknown]
